FAERS Safety Report 5694629-0 (Version None)
Quarter: 2008Q2

REPORT INFORMATION
  Report Type: 
  Country: None (occurrence: None)
  Receive Date: 20080404
  Receipt Date: 20080327
  Transmission Date: 20081010
  Serious: Yes (Life-Threatening)
  Sender: FDA-Public Use
  Company Number: US-ABBOTT-08R-163-0444611-00

PATIENT

DRUGS (1)
  1. SURVANTA [Suspect]
     Indication: RESPIRATORY FAILURE
     Dosage: NO REPORTED
     Route: 007

REACTIONS (1)
  - OXYGEN SATURATION DECREASED [None]
